FAERS Safety Report 9886494 (Version 2)
Quarter: 2014Q1

REPORT INFORMATION
  Report Type: Report from Study
  Country: NL (occurrence: NL)
  Receive Date: 20140210
  Receipt Date: 20140228
  Transmission Date: 20141002
  Serious: Yes (Hospitalization)
  Sender: FDA-Public Use
  Company Number: PHHY2014NL016062

PATIENT
  Sex: Female

DRUGS (3)
  1. SANDOSTATIN LAR [Suspect]
     Indication: NEUROENDOCRINE TUMOUR
     Dosage: 20 MG/2ML, ONCE PER 4 WEEKS
     Route: 030
  2. SANDOSTATIN LAR [Suspect]
     Dosage: 20 MG/2ML, ONCE PER 4 WEEKS
     Route: 030
     Dates: start: 20131011
  3. SANDOSTATIN LAR [Suspect]
     Dosage: 20 MG/2ML, ONCE PER 4 WEEKS
     Route: 030
     Dates: start: 20140109

REACTIONS (3)
  - Syncope [Unknown]
  - Brain neoplasm [Unknown]
  - Second primary malignancy [Unknown]
